FAERS Safety Report 6275197-1 (Version None)
Quarter: 2009Q3

REPORT INFORMATION
  Report Type: 
  Country: None (occurrence: None)
  Receive Date: 20090721
  Receipt Date: 20090716
  Transmission Date: 20100115
  Serious: Yes (Death, Hospitalization, Other)
  Sender: FDA-Public Use
  Company Number: DE-BAYER-200825606GPV

PATIENT
  Age: 67 Year
  Sex: Male
  Weight: 84 kg

DRUGS (10)
  1. NEXAVAR [Suspect]
     Indication: MALIGNANT MELANOMA
     Dosage: TOTAL DAILY DOSE: 800 MG
     Route: 048
     Dates: start: 20080401, end: 20080801
  2. DENDRITIC CELL VAC [Concomitant]
     Indication: MALIGNANT MELANOMA
  3. ASPIRIN [Concomitant]
  4. ALNA [Concomitant]
  5. RAMIPRIL [Concomitant]
  6. HYDROCHLOROTHIAZIDE [Concomitant]
  7. L-THYROXIN [Concomitant]
  8. AMLODIPINE [Concomitant]
  9. MOBIC [Concomitant]
  10. SIMVAHEXAL [Concomitant]

REACTIONS (6)
  - ABDOMINAL PAIN [None]
  - ACUTE ABDOMEN [None]
  - COLITIS ULCERATIVE [None]
  - DIARRHOEA [None]
  - LARGE INTESTINE PERFORATION [None]
  - PALMAR-PLANTAR ERYTHRODYSAESTHESIA SYNDROME [None]
